FAERS Safety Report 4818319-9 (Version None)
Quarter: 2005Q4

REPORT INFORMATION
  Report Type: 
  Country: None (occurrence: None)
  Receive Date: 20051102
  Receipt Date: 20051028
  Transmission Date: 20060501
  Serious: Yes (Life-Threatening, Hospitalization)
  Sender: FDA-Public Use
  Company Number: PHBS2005CH15852

PATIENT
  Age: 68 Year
  Sex: Male

DRUGS (9)
  1. IMUREK [Concomitant]
     Dosage: 75 MG/D
  2. ASPIRIN [Concomitant]
     Dosage: 100 MG/D
  3. ZOCOR [Concomitant]
     Dosage: 20 MG/D
     Dates: end: 20051002
  4. NORVASC [Concomitant]
     Dosage: 5 MG/D
     Dates: end: 20051002
  5. CO-RENITEN [Concomitant]
     Dosage: 1 TAB/D
     Dates: end: 20051010
  6. NEXIUM [Concomitant]
     Dosage: 40 MG/D
  7. HEPARIN [Concomitant]
     Dosage: 10000 IU/D
  8. SANDIMMUNE [Suspect]
     Indication: RENAL TRANSPLANT
     Dosage: 100 MG/D
     Route: 048
     Dates: end: 20051011
  9. TAZOBAC [Suspect]
     Dosage: 4.5 G, TID
     Route: 042
     Dates: start: 20051008, end: 20051018

REACTIONS (18)
  - ALANINE AMINOTRANSFERASE INCREASED [None]
  - ASPARTATE AMINOTRANSFERASE INCREASED [None]
  - BILE DUCT STONE [None]
  - BLOOD ALKALINE PHOSPHATASE INCREASED [None]
  - BLOOD BILIRUBIN INCREASED [None]
  - BLOOD CREATININE INCREASED [None]
  - C-REACTIVE PROTEIN INCREASED [None]
  - CHOLEDOCHOLITHOTOMY [None]
  - CHOLELITHIASIS [None]
  - CONVULSION [None]
  - DEPRESSED LEVEL OF CONSCIOUSNESS [None]
  - DISORIENTATION [None]
  - DRUG LEVEL INCREASED [None]
  - ENDOSCOPIC RETROGRADE CHOLANGIOPANCREATOGRAPHY [None]
  - GASTROINTESTINAL TUBE INSERTION [None]
  - GENERAL PHYSICAL HEALTH DETERIORATION [None]
  - LIVER FUNCTION TEST ABNORMAL [None]
  - MYOCLONUS [None]
